FAERS Safety Report 8733402 (Version 2)
Quarter: 2012Q4

REPORT INFORMATION
  Report Type: 
  Country: CA (occurrence: CA)
  Receive Date: 20120821
  Receipt Date: 20121207
  Transmission Date: 20130627
  Serious: Yes (Death, Life-Threatening, Hospitalization)
  Sender: FDA-Public Use
  Company Number: CA-GENZYME-THYM-1003382

PATIENT
  Age: 47 Year
  Sex: Male
  Weight: 110 kg

DRUGS (14)
  1. THYMOGLOBULINE [Suspect]
     Indication: PROPHYLAXIS AGAINST GRAFT VERSUS HOST DISEASE
     Dosage: 0.5 mg/kg, once
     Route: 042
     Dates: start: 20110824, end: 20110824
  2. THYMOGLOBULINE [Suspect]
     Indication: IMMUNOSUPPRESSION
     Dosage: 2 mg/kg, once
     Route: 042
     Dates: start: 20110825, end: 20110825
  3. THYMOGLOBULINE [Suspect]
     Dosage: 2 mg/kg, once
     Route: 042
     Dates: start: 20110827, end: 20110827
  4. FLUCONAZOLE [Concomitant]
     Indication: PRODUCT USED FOR UNKNOWN INDICATION
     Dosage: 400 mg, qd
     Route: 065
  5. CYCLOSPORINE [Concomitant]
     Indication: PRODUCT USED FOR UNKNOWN INDICATION
     Dosage: 175 mg, bid
     Route: 042
  6. FOLIC ACID [Concomitant]
     Indication: PRODUCT USED FOR UNKNOWN INDICATION
     Dosage: 1 mg, qd
     Route: 048
  7. ACYCLOVIR [Concomitant]
     Indication: PRODUCT USED FOR UNKNOWN INDICATION
     Dosage: 400 mg, bid
     Route: 065
  8. LASIX [Concomitant]
     Indication: PRODUCT USED FOR UNKNOWN INDICATION
     Dosage: 20 mg, bid, prn
     Route: 065
  9. URSODIOL [Concomitant]
     Indication: PRODUCT USED FOR UNKNOWN INDICATION
     Dosage: 750 mg, bid
     Route: 048
  10. MIDAZOLAM [Concomitant]
     Indication: PRODUCT USED FOR UNKNOWN INDICATION
     Dosage: UNK
     Route: 065
  11. FENTANYL [Concomitant]
     Indication: PRODUCT USED FOR UNKNOWN INDICATION
     Dosage: UNK
     Route: 065
  12. INSULIN HUMULIN-N [Concomitant]
     Indication: PRODUCT USED FOR UNKNOWN INDICATION
     Dosage: In morning
     Route: 065
  13. NPH-INSULIN [Concomitant]
     Indication: PRODUCT USED FOR UNKNOWN INDICATION
     Dosage: In evening
     Route: 065
  14. INSULIN-TORONTO [Concomitant]
     Indication: PRODUCT USED FOR UNKNOWN INDICATION
     Dosage: UNK, sliding scale
     Route: 065

REACTIONS (11)
  - Cardiac arrest [Recovered/Resolved]
  - Transplant failure [Fatal]
  - Venoocclusive liver disease [Fatal]
  - Blood creatinine increased [Recovered/Resolved]
  - Pleural effusion [Fatal]
  - Atelectasis [Fatal]
  - Blood bilirubin increased [Fatal]
  - White blood cell count decreased [Fatal]
  - Sepsis [Fatal]
  - Pyrexia [Recovered/Resolved]
  - Dyspnoea [Fatal]
